FAERS Safety Report 9928339 (Version 1)
Quarter: 2014Q1

REPORT INFORMATION
  Report Type: Spontaneous
  Country: DE (occurrence: DE)
  Receive Date: 20140227
  Receipt Date: 20140227
  Transmission Date: 20141002
  Serious: Yes (Other)
  Sender: FDA-Public Use
  Company Number: DE-ASTRAZENECA-2014SE11814

PATIENT
  Age: 45 Year
  Sex: Male
  Weight: 52 kg

DRUGS (5)
  1. BUPIVACAINE [Suspect]
     Indication: BREAKTHROUGH PAIN
     Dosage: BUPIVACAINE HCL 0.25% AND MORPHINE HCL 0.005% IN A 1,000 ML BAG, DAILY DOSE OF BUPIVACAINE:360 MG
     Route: 037
  2. BUPIVACAINE [Suspect]
     Indication: BREAKTHROUGH PAIN
     Dosage: DAILY DOSE OF BUPIVACAINE:360 MG, INFUSION RATE:3 ML/H, INFUSION VOLUME: 72 ML
     Route: 037
  3. MORPHINE [Suspect]
     Indication: BREAKTHROUGH PAIN
     Dosage: BUPIVACAINE HCL 0.25% AND MORPHINE HCL 0.005% IN A 1,000 ML BAG, DAILY DOSE OF MORPHINE:7.16 MG
     Route: 037
  4. MORPHINE [Suspect]
     Indication: BREAKTHROUGH PAIN
     Dosage: DAILY DOSE OF MORPHINE:7.16 MG, INFUSION RATE:3 ML/H, INFUSION VOLUME: 72 ML
     Route: 037
  5. LIDOCAINE WITH EPINEPHRINE [Concomitant]
     Dosage: 1:200,000
     Route: 037

REACTIONS (1)
  - Soft tissue necrosis [Unknown]
